FAERS Safety Report 24357177 (Version 1)
Quarter: 2024Q3

REPORT INFORMATION
  Report Type: Spontaneous
  Country: US (occurrence: US)
  Receive Date: 20240924
  Receipt Date: 20240924
  Transmission Date: 20241017
  Serious: No
  Sender: CELLTRION
  Company Number: US-CELLTRION INC.-2023US016889

PATIENT

DRUGS (1)
  1. INFLECTRA [Suspect]
     Active Substance: INFLIXIMAB-DYYB
     Indication: Colitis ulcerative
     Dosage: 400 MG, Q8WKS
     Route: 042
     Dates: start: 20230701

REACTIONS (4)
  - Therapy interrupted [Unknown]
  - Intercepted product administration error [Unknown]
  - Product communication issue [Unknown]
  - Underdose [Unknown]
